FAERS Safety Report 21683537 (Version 2)
Quarter: 2023Q1

REPORT INFORMATION
  Report Type: Report from Study
  Country: US (occurrence: US)
  Receive Date: 20221205
  Receipt Date: 20230302
  Transmission Date: 20230418
  Serious: Yes (Other)
  Sender: FDA-Public Use
  Company Number: US-ABBVIE-4223802

PATIENT
  Sex: Male

DRUGS (2)
  1. IMBRUVICA [Suspect]
     Active Substance: IBRUTINIB
     Indication: Chronic lymphocytic leukaemia
     Dosage: STRENGTH: 280 MG
     Route: 048
     Dates: start: 20180502
  2. IMBRUVICA [Suspect]
     Active Substance: IBRUTINIB
     Indication: Chronic lymphocytic leukaemia
     Dosage: STRENGTH: 140MG
     Route: 048
     Dates: start: 20171206, end: 20180502

REACTIONS (10)
  - Skin cancer [Unknown]
  - Lymphoedema [Unknown]
  - Contusion [Unknown]
  - Wound haemorrhage [Unknown]
  - Dementia [Unknown]
  - Coronary artery occlusion [Unknown]
  - Fall [Unknown]
  - Wound complication [Unknown]
  - Lymphadenopathy [Unknown]
  - Limb injury [Unknown]
